FAERS Safety Report 19200151 (Version 1)
Quarter: 2021Q2

REPORT INFORMATION
  Report Type: Spontaneous
  Country: US (occurrence: US)
  Receive Date: 20210430
  Receipt Date: 20210430
  Transmission Date: 20210717
  Serious: Yes (Hospitalization)
  Sender: FDA-Public Use
  Company Number: US-MYLANLABS-2021M1025526

PATIENT
  Sex: Female

DRUGS (10)
  1. FLECAINIDE [Suspect]
     Active Substance: FLECAINIDE
     Indication: SUPRAVENTRICULAR TACHYCARDIA
     Dosage: 150 MILLIGRAM, BID, RECEIVED FROM 19 6/7 GESTATIONAL WEEK TILL DELIVERY
     Route: 064
  2. SOTALOL. [Suspect]
     Active Substance: SOTALOL
     Indication: SUPRAVENTRICULAR TACHYCARDIA
     Dosage: 160 MILLIGRAM, BID, RECEIVED FROM 20 3/7 GESTATIONAL WEEK TO 20 5/7
     Route: 064
  3. SOTALOL. [Suspect]
     Active Substance: SOTALOL
     Dosage: 200 MILLIGRAM, BID, RECEIVED FROM 20 5/7 GESTATIONAL WEEK TO 22 3/7
     Route: 064
  4. AMIODARONE [Suspect]
     Active Substance: AMIODARONE
     Indication: SUPRAVENTRICULAR TACHYCARDIA
     Dosage: 5 MILLIGRAM, RECEIVED ONCE AT GESTATION 22 3/7 ONCE
  5. AMIODARONE [Suspect]
     Active Substance: AMIODARONE
     Dosage: 800 MILLIGRAM, QD,RECEIVED FROM 22 3/7 GESTATION WEEK TO DELIVERY
     Route: 064
  6. METOPROLOL. [Suspect]
     Active Substance: METOPROLOL
     Indication: SUPRAVENTRICULAR TACHYCARDIA
     Dosage: 100 MILLIGRAM, QD,RECEIVED FROM 22 3/7 GESTATION WEEK TO DELIVERY
     Route: 064
  7. DIGOXIN. [Suspect]
     Active Substance: DIGOXIN
     Indication: SUPRAVENTRICULAR TACHYCARDIA
     Dosage: 500 MICROGRAM, LOADING DOSE 500UG , RECEIVED THREE DOSES
     Route: 064
  8. AMIODARONE [Suspect]
     Active Substance: AMIODARONE
     Indication: SUPRAVENTRICULAR TACHYCARDIA
     Dosage: 600 MILLIGRAM, QD, RECEIVED FROM 22 3/7 GESTATION WEEK FOR 7DAYS
     Route: 064
  9. DIGOXIN. [Suspect]
     Active Substance: DIGOXIN
     Dosage: 250 MICROGRAM, BID, MAINTENANCE DOSE, RECEIVED BETWEEN 19 3/7 GESTATIONAL WEEK AND 20 2/7
     Route: 064
  10. DIGOXIN. [Suspect]
     Active Substance: DIGOXIN
     Indication: SUPRAVENTRICULAR TACHYCARDIA
     Dosage: 88 MICROGRAM/KILOGRAM,RECEIVED ONCE (64UG)
     Route: 030

REACTIONS (2)
  - Maternal exposure during pregnancy [Unknown]
  - Drug ineffective [Unknown]
